FAERS Safety Report 22969284 (Version 2)
Quarter: 2023Q4

REPORT INFORMATION
  Report Type: Spontaneous
  Country: FR (occurrence: FR)
  Receive Date: 20230922
  Receipt Date: 20231005
  Transmission Date: 20240109
  Serious: Yes (Other)
  Sender: FDA-Public Use
  Company Number: None

PATIENT
  Age: 75 Year
  Sex: Female
  Weight: 63 kg

DRUGS (37)
  1. HYDROXYUREA [Suspect]
     Active Substance: HYDROXYUREA
     Indication: Myeloid leukaemia
     Dates: start: 20220412
  2. HYDROXYUREA [Suspect]
     Active Substance: HYDROXYUREA
     Indication: Myeloid leukaemia
     Dosage: DAILY DOSE: 1500 MILLIGRAM
     Route: 048
     Dates: start: 20220415, end: 20220417
  3. HYDROXYUREA [Suspect]
     Active Substance: HYDROXYUREA
     Indication: Myeloid leukaemia
     Dosage: DAILY DOSE: 3000 MILLIGRAM
     Route: 048
     Dates: start: 20220417, end: 20220420
  4. PIPERACILLIN SODIUM\TAZOBACTAM SODIUM [Suspect]
     Active Substance: PIPERACILLIN SODIUM\TAZOBACTAM SODIUM
     Indication: Product used for unknown indication
     Dosage: 4 GX3/D?DAILY DOSE: 12 GRAM
     Route: 042
     Dates: start: 20220422, end: 20220429
  5. PIPERACILLIN SODIUM\TAZOBACTAM SODIUM [Suspect]
     Active Substance: PIPERACILLIN SODIUM\TAZOBACTAM SODIUM
     Indication: Pyelonephritis
     Dosage: 4 GX3/D?DAILY DOSE: 12 GRAM
     Route: 042
     Dates: start: 20220422, end: 20220429
  6. AMIKACIN [Suspect]
     Active Substance: AMIKACIN
     Indication: Product used for unknown indication
     Dosage: 500 MGX2/DAY?DAILY DOSE: 1000 MILLIGRAM
     Route: 042
     Dates: start: 20220420, end: 20220502
  7. AMIKACIN [Suspect]
     Active Substance: AMIKACIN
     Indication: Pyelonephritis
     Dosage: 500 MGX2/DAY?DAILY DOSE: 1000 MILLIGRAM
     Route: 042
     Dates: start: 20220420, end: 20220502
  8. AMIKACIN [Suspect]
     Active Substance: AMIKACIN
     Indication: Product used for unknown indication
     Dosage: 500 MGX2/DAY?DAILY DOSE: 1000 MILLIGRAM
     Route: 042
     Dates: start: 20220506, end: 20220520
  9. AMIKACIN [Suspect]
     Active Substance: AMIKACIN
     Indication: Pyelonephritis
     Dosage: 500 MGX2/DAY?DAILY DOSE: 1000 MILLIGRAM
     Route: 042
     Dates: start: 20220506, end: 20220520
  10. FUROSEMIDE [Suspect]
     Active Substance: FUROSEMIDE
     Indication: Cardiac failure
     Dosage: DAILY DOSE: 40 MILLIGRAM
     Route: 042
     Dates: start: 20220415, end: 20220415
  11. FUROSEMIDE [Suspect]
     Active Substance: FUROSEMIDE
     Indication: Nephropathy toxic
     Dosage: DAILY DOSE: 40 MILLIGRAM
     Route: 042
     Dates: start: 20220415, end: 20220415
  12. FUROSEMIDE [Suspect]
     Active Substance: FUROSEMIDE
     Indication: Cardiac failure
     Dosage: DAILY DOSE: 40 MILLIGRAM
     Route: 042
     Dates: start: 20220418, end: 20220418
  13. FUROSEMIDE [Suspect]
     Active Substance: FUROSEMIDE
     Indication: Nephropathy toxic
     Dosage: DAILY DOSE: 40 MILLIGRAM
     Route: 042
     Dates: start: 20220418, end: 20220418
  14. FUROSEMIDE [Suspect]
     Active Substance: FUROSEMIDE
     Indication: Cardiac failure
     Dosage: DAILY DOSE: 20 MILLIGRAM
     Route: 042
     Dates: start: 20220421, end: 20220421
  15. FUROSEMIDE [Suspect]
     Active Substance: FUROSEMIDE
     Indication: Nephropathy toxic
     Dosage: DAILY DOSE: 20 MILLIGRAM
     Route: 042
     Dates: start: 20220421, end: 20220421
  16. FUROSEMIDE [Suspect]
     Active Substance: FUROSEMIDE
     Indication: Cardiac failure
     Dosage: DAILY DOSE: 20 MILLIGRAM
     Route: 042
     Dates: start: 20220424, end: 20220425
  17. FUROSEMIDE [Suspect]
     Active Substance: FUROSEMIDE
     Indication: Nephropathy toxic
     Dosage: DAILY DOSE: 20 MILLIGRAM
     Route: 042
     Dates: start: 20220424, end: 20220425
  18. FUROSEMIDE [Suspect]
     Active Substance: FUROSEMIDE
     Indication: Cardiac failure
     Dosage: DAILY DOSE: 60 MILLIGRAM
     Route: 048
     Dates: start: 20220428, end: 20220430
  19. FUROSEMIDE [Suspect]
     Active Substance: FUROSEMIDE
     Indication: Nephropathy toxic
     Dosage: DAILY DOSE: 60 MILLIGRAM
     Route: 048
     Dates: start: 20220428, end: 20220430
  20. FUROSEMIDE [Suspect]
     Active Substance: FUROSEMIDE
     Indication: Cardiac failure
     Dates: start: 20220501, end: 20220505
  21. FUROSEMIDE [Suspect]
     Active Substance: FUROSEMIDE
     Indication: Nephropathy toxic
     Dates: start: 20220501, end: 20220505
  22. FUROSEMIDE [Suspect]
     Active Substance: FUROSEMIDE
     Indication: Cardiac failure
     Route: 042
     Dates: start: 20220514, end: 20220514
  23. FUROSEMIDE [Suspect]
     Active Substance: FUROSEMIDE
     Indication: Nephropathy toxic
     Route: 042
     Dates: start: 20220514, end: 20220514
  24. FUROSEMIDE [Suspect]
     Active Substance: FUROSEMIDE
     Indication: Cardiac failure
     Dosage: DAILY DOSE: 80 MILLIGRAM
     Route: 042
     Dates: start: 20220520, end: 20220521
  25. FUROSEMIDE [Suspect]
     Active Substance: FUROSEMIDE
     Indication: Nephropathy toxic
     Dosage: DAILY DOSE: 80 MILLIGRAM
     Route: 042
     Dates: start: 20220520, end: 20220521
  26. FUROSEMIDE [Suspect]
     Active Substance: FUROSEMIDE
     Indication: Cardiac failure
     Dosage: DAILY DOSE: 40 MILLIGRAM
     Route: 042
     Dates: start: 20220522, end: 20220525
  27. FUROSEMIDE [Suspect]
     Active Substance: FUROSEMIDE
     Indication: Nephropathy toxic
     Dosage: DAILY DOSE: 40 MILLIGRAM
     Route: 042
     Dates: start: 20220522, end: 20220525
  28. VANCOMYCIN [Suspect]
     Active Substance: VANCOMYCIN
     Indication: Renal tubular necrosis
     Dosage: DAILY DOSE: 2 GRAM
     Route: 042
     Dates: start: 20220419, end: 20220510
  29. VANCOMYCIN [Suspect]
     Active Substance: VANCOMYCIN
     Indication: Infection
     Dosage: DAILY DOSE: 2 GRAM
     Route: 042
     Dates: start: 20220419, end: 20220510
  30. VALACYCLOVIR [Suspect]
     Active Substance: VALACYCLOVIR HYDROCHLORIDE
     Indication: Product used for unknown indication
     Dosage: DAILY DOSE: 500 MILLIGRAM
     Route: 048
     Dates: start: 20220415, end: 20220430
  31. POSACONAZOLE [Suspect]
     Active Substance: POSACONAZOLE
     Indication: Antifungal treatment
     Dosage: 100 MGX3/DAY?DAILY DOSE: 300 MILLIGRAM
     Route: 048
     Dates: start: 20220420, end: 20220430
  32. CYTARABINE [Suspect]
     Active Substance: CYTARABINE
     Indication: Myeloid leukaemia
     Dosage: DAILY DOSE: 160 MILLIGRAM
     Route: 042
     Dates: start: 20220426, end: 20220502
  33. LOMUSTINE [Suspect]
     Active Substance: LOMUSTINE
     Indication: Myeloid leukaemia
     Dates: start: 20230426, end: 20230426
  34. OXYCODONE [Concomitant]
     Active Substance: OXYCODONE
  35. AMBISOME [Concomitant]
     Active Substance: AMPHOTERICIN B
  36. MEROPENEM [Concomitant]
     Active Substance: MEROPENEM
  37. IDARUBICIN HYDROCHLORIDE [Concomitant]
     Active Substance: IDARUBICIN HYDROCHLORIDE
     Dosage: 5 DAYS ?DAILY DOSE: 13 MILLIGRAM

REACTIONS (2)
  - Acute kidney injury [Recovering/Resolving]
  - Febrile neutropenia [Unknown]

NARRATIVE: CASE EVENT DATE: 20220427
